FAERS Safety Report 11409219 (Version 1)
Quarter: 2015Q3

REPORT INFORMATION
  Report Type: Spontaneous
  Country: US (occurrence: None)
  Receive Date: 20150820
  Receipt Date: 20150820
  Transmission Date: 20151125
  Serious: No
  Sender: FDA-Public Use
  Company Number: None

PATIENT
  Age: 30 Year
  Sex: Male
  Weight: 63.5 kg

DRUGS (2)
  1. MS CONTIN [Suspect]
     Active Substance: MORPHINE SULFATE
     Indication: PAIN
     Dosage: 1 PILL
     Route: 048
     Dates: start: 20150819, end: 20150819
  2. OXYCODONE [Concomitant]
     Active Substance: OXYCODONE

REACTIONS (5)
  - Condition aggravated [None]
  - Headache [None]
  - Drug effect decreased [None]
  - Fatigue [None]
  - Product substitution issue [None]

NARRATIVE: CASE EVENT DATE: 20150819
